FAERS Safety Report 15409537 (Version 4)
Quarter: 2019Q4

REPORT INFORMATION
  Report Type: Report from Study
  Country: US (occurrence: US)
  Receive Date: 20180920
  Receipt Date: 20191015
  Transmission Date: 20200122
  Serious: Yes (Other)
  Sender: FDA-Public Use
  Company Number: PHEH2018US038078

PATIENT
  Age: 39 Year
  Sex: Female

DRUGS (1)
  1. GILENYA [Suspect]
     Active Substance: FINGOLIMOD HYDROCHLORIDE
     Indication: PRODUCT USED FOR UNKNOWN INDICATION
     Dosage: 0.5 MG, QD
     Route: 048
     Dates: start: 20180907, end: 20190902

REACTIONS (5)
  - Fatigue [Unknown]
  - Drug ineffective [Unknown]
  - Multiple sclerosis [Unknown]
  - Heart rate decreased [Unknown]
  - Cough [Unknown]

NARRATIVE: CASE EVENT DATE: 20180907
